FAERS Safety Report 5531894-4 (Version None)
Quarter: 2007Q4

REPORT INFORMATION
  Report Type: 
  Country: None (occurrence: None)
  Receive Date: 20071203
  Receipt Date: 20071121
  Transmission Date: 20080405
  Serious: Yes (Death, Other)
  Sender: FDA-Public Use
  Company Number: JP-ELI_LILLY_AND_COMPANY-JP200711005792

PATIENT
  Sex: Male

DRUGS (3)
  1. GEMCITABINE HCL [Suspect]
     Indication: TRANSITIONAL CELL CARCINOMA
     Dosage: 1000 MG/M2, OTHER
     Route: 042
  2. CISPLATIN [Concomitant]
     Indication: TRANSITIONAL CELL CARCINOMA
     Dosage: 70 MG/M2, OTHER
     Route: 042
  3. PACLITAXEL [Concomitant]
     Indication: TRANSITIONAL CELL CARCINOMA
     Dosage: 80 MG/M2, OTHER
     Route: 042

REACTIONS (2)
  - DEATH [None]
  - NEUTROPHIL COUNT DECREASED [None]
